FAERS Safety Report 6545350-8 (Version None)
Quarter: 2010Q1

REPORT INFORMATION
  Report Type: 
  Country: None (occurrence: None)
  Receive Date: 20100121
  Receipt Date: 20100118
  Transmission Date: 20100710
  Serious: Yes (Other)
  Sender: FDA-Public Use
  Company Number: US-PFIZER INC-2010007908

PATIENT
  Sex: Female
  Weight: 68.038 kg

DRUGS (2)
  1. XALATAN [Suspect]
     Indication: GLAUCOMA
     Dosage: ONE DROP IN EACH EYE, 1X/DAY
     Route: 047
     Dates: start: 20050101
  2. HYZAAR [Concomitant]
     Indication: HYPERTENSION

REACTIONS (2)
  - CATARACT [None]
  - PHOTOPSIA [None]
